FAERS Safety Report 17873008 (Version 1)
Quarter: 2020Q2

REPORT INFORMATION
  Report Type: Spontaneous
  Country: IE (occurrence: IE)
  Receive Date: 20200608
  Receipt Date: 20200608
  Transmission Date: 20200714
  Serious: Yes (Hospitalization)
  Sender: FDA-Public Use
  Company Number: IE-ANIPHARMA-2020-IE-000007

PATIENT
  Age: 71 Year
  Sex: Male

DRUGS (3)
  1. VANCOMYCIN HYDROCHLORIDE (NON-SPECIFIC) [Suspect]
     Active Substance: VANCOMYCIN HYDROCHLORIDE
     Indication: ARTHRITIS BACTERIAL
  2. UNSPECIFIED CEPHALOSPORINE [Suspect]
     Active Substance: UNSPECIFIED INGREDIENT
     Indication: ARTHRITIS BACTERIAL
  3. GENTAMICIN. [Suspect]
     Active Substance: GENTAMICIN
     Indication: ARTHRITIS BACTERIAL

REACTIONS (2)
  - Angioedema [Unknown]
  - Rash morbilliform [Unknown]
